FAERS Safety Report 5040703-1 (Version None)
Quarter: 2006Q2

REPORT INFORMATION
  Report Type: 
  Country: None (occurrence: None)
  Receive Date: 20060630
  Receipt Date: 20060630
  Transmission Date: 20061013
  Serious: Yes (Hospitalization)
  Sender: FDA-Public Use
  Company Number: None

PATIENT
  Age: 76 Year
  Sex: Male

DRUGS (2)
  1. TARCEVA [Suspect]
     Indication: PROSTATE CANCER
     Dosage: 150 MG PO QD
     Dates: start: 20060320, end: 20060515
  2. TARCEVA [Suspect]
     Indication: PROSTATE CANCER
     Dosage: 150 MG QD
     Dates: start: 20060518

REACTIONS (5)
  - HAEMATURIA [None]
  - OBSTRUCTION [None]
  - PYREXIA [None]
  - RENAL FAILURE [None]
  - URINARY TRACT INFECTION [None]
